FAERS Safety Report 13427646 (Version 2)
Quarter: 2017Q2

REPORT INFORMATION
  Report Type: Other
  Country: IT (occurrence: IT)
  Receive Date: 20170411
  Receipt Date: 20170414
  Transmission Date: 20170830
  Serious: Yes (Hospitalization)
  Sender: FDA-Public Use
  Company Number: IT-VALIDUS PHARMACEUTICALS LLC-IT-2017VAL000533

PATIENT
  Age: 52 Year
  Sex: Female

DRUGS (12)
  1. QUETIAPINE. [Suspect]
     Active Substance: QUETIAPINE
     Indication: SUICIDAL IDEATION
     Dosage: 800 MILLIGRAM(S);TOTAL
     Route: 048
     Dates: start: 20170116, end: 20170116
  2. LASIX [Suspect]
     Active Substance: FUROSEMIDE
     Indication: SUICIDAL IDEATION
     Dosage: 100 MILLIGRAM(S);TOTAL
     Route: 048
     Dates: start: 20170116, end: 20170116
  3. VALDORM                            /00246102/ [Suspect]
     Active Substance: FLURAZEPAM HYDROCHLORIDE
     Indication: SUICIDE ATTEMPT
  4. DELORAZEPAM [Suspect]
     Active Substance: DELORAZEPAM
     Indication: SUICIDAL IDEATION
     Dosage: 2 MG, UNK
     Route: 048
  5. METFORMIN [Suspect]
     Active Substance: METFORMIN HYDROCHLORIDE
     Indication: SUICIDAL IDEATION
     Dosage: 450 MILLIGRAM(S);TOTAL
     Route: 048
     Dates: start: 20170116, end: 20170116
  6. VALDORM                            /00246102/ [Suspect]
     Active Substance: FLURAZEPAM HYDROCHLORIDE
     Indication: SUICIDAL IDEATION
     Dosage: 120 MILLIGRAM(S);TOTAL
     Route: 048
     Dates: start: 20170116, end: 20170116
  7. QUETIAPINE. [Suspect]
     Active Substance: QUETIAPINE
     Indication: SUICIDE ATTEMPT
  8. DELORAZEPAM [Suspect]
     Active Substance: DELORAZEPAM
     Indication: SUICIDE ATTEMPT
     Dosage: 16 MILLIGRAM(S);TOTAL
     Route: 048
     Dates: start: 20170116, end: 20170116
  9. LASIX [Suspect]
     Active Substance: FUROSEMIDE
     Indication: SUICIDE ATTEMPT
  10. WELLBUTRIN [Suspect]
     Active Substance: BUPROPION HYDROCHLORIDE
     Indication: SUICIDAL IDEATION
     Dosage: 1200 MILLIGRAM(S);TOTAL
     Route: 048
     Dates: start: 20170116, end: 20170116
  11. METFORMIN [Suspect]
     Active Substance: METFORMIN HYDROCHLORIDE
     Indication: SUICIDE ATTEMPT
  12. WELLBUTRIN [Suspect]
     Active Substance: BUPROPION HYDROCHLORIDE
     Indication: SUICIDE ATTEMPT

REACTIONS (2)
  - Overdose [Recovering/Resolving]
  - Toxicity to various agents [Recovering/Resolving]

NARRATIVE: CASE EVENT DATE: 20170116
